FAERS Safety Report 8000670 (Version 3)
Quarter: 2017Q2

REPORT INFORMATION
  Report Type: Spontaneous
  Country: US (occurrence: US)
  Receive Date: 20110621
  Receipt Date: 20170505
  Transmission Date: 20170830
  Serious: Yes (Other)
  Sender: FDA-Public Use
  Company Number: US-ASTRAZENECA-2010SE57136

PATIENT
  Age: 55 Year
  Sex: Female

DRUGS (1)
  1. PULMICORT FLEXHALER [Suspect]
     Active Substance: BUDESONIDE
     Dosage: 180UG, TWO INHALATIONS TWO TIMES ADAY
     Route: 055

REACTIONS (5)
  - Fall [Unknown]
  - Malaise [Unknown]
  - Road traffic accident [Unknown]
  - Mental impairment [Unknown]
  - Stress [Unknown]
